FAERS Safety Report 9142623 (Version 2)
Quarter: 2013Q2

REPORT INFORMATION
  Report Type: Spontaneous
  Country: NO (occurrence: NO)
  Receive Date: 20130306
  Receipt Date: 20130430
  Transmission Date: 20140414
  Serious: Yes (Other)
  Sender: FDA-Public Use
  Company Number: PHHY2013NO020502

PATIENT
  Age: 31 Year
  Sex: Female

DRUGS (1)
  1. EXTAVIA [Suspect]
     Indication: MULTIPLE SCLEROSIS
     Dosage: 250 UG, QOD
     Route: 058
     Dates: start: 20100429, end: 20100826

REACTIONS (3)
  - Psoriasis [Recovering/Resolving]
  - Skin disorder [Recovered/Resolved]
  - Injection site discolouration [Recovered/Resolved]
